FAERS Safety Report 8699889 (Version 3)
Quarter: 2012Q4

REPORT INFORMATION
  Report Type: 
  Country: US (occurrence: US)
  Receive Date: 20120802
  Receipt Date: 20121112
  Transmission Date: 20130627
  Serious: No
  Sender: FDA-Public Use
  Company Number: US-ASTRAZENECA-2012SE43507

PATIENT
  Age: 70 Year
  Sex: Female
  Weight: 56.7 kg

DRUGS (8)
  1. ASPIRIN [Suspect]
     Route: 048
  2. NEXIUM [Suspect]
     Indication: GASTROOESOPHAGEAL REFLUX DISEASE
     Route: 048
     Dates: start: 20120425
  3. NEXIUM [Suspect]
     Indication: GASTROOESOPHAGEAL REFLUX DISEASE
     Route: 048
  4. OMEPRAZOLE [Suspect]
     Route: 048
  5. NASONEX [Concomitant]
     Dosage: 2 SPRAY EACH NOSTRIL DAILY
     Route: 045
  6. EFUDEX [Concomitant]
     Dosage: APPLY TO NOSE
  7. LOPRESSOR [Concomitant]
  8. TUMS [Concomitant]

REACTIONS (55)
  - Gastrooesophageal reflux disease [Unknown]
  - Gastrooesophageal reflux disease [Unknown]
  - Atrial tachycardia [Unknown]
  - Pain [Unknown]
  - Frequent bowel movements [Unknown]
  - Pollakiuria [Unknown]
  - Sinus polyp [Unknown]
  - Colon adenoma [Unknown]
  - Intervertebral disc degeneration [Unknown]
  - Diverticulum [Unknown]
  - Oesophagitis [Unknown]
  - Hepatic steatosis [Unknown]
  - Gastritis [Unknown]
  - Haemorrhoids [Unknown]
  - Hypercholesterolaemia [Unknown]
  - Osteopenia [Unknown]
  - Osteoporosis [Unknown]
  - Gastroenteritis viral [Unknown]
  - Abdominal pain [Unknown]
  - Feeling hot [Unknown]
  - Feeling cold [Unknown]
  - Chills [Unknown]
  - Nervousness [Unknown]
  - Heart rate increased [Not Recovered/Not Resolved]
  - Sinus headache [Unknown]
  - Productive cough [Unknown]
  - Increased upper airway secretion [Unknown]
  - Gastric disorder [Unknown]
  - Nausea [Unknown]
  - Flatulence [Unknown]
  - Headache [Unknown]
  - Throat irritation [Unknown]
  - Dizziness [Recovered/Resolved]
  - Amnesia [Unknown]
  - Lacrimation increased [Unknown]
  - Dyspnoea [Unknown]
  - Chest pain [Unknown]
  - Heart rate irregular [Unknown]
  - Tachycardia [Unknown]
  - Hyperlipidaemia [Unknown]
  - Back pain [Unknown]
  - Arthralgia [Unknown]
  - Syncope [Unknown]
  - Seasonal allergy [Unknown]
  - Drug dose omission [Unknown]
  - Palpitations [Unknown]
  - Pharyngeal disorder [Unknown]
  - Tinnitus [Not Recovered/Not Resolved]
  - Head discomfort [Unknown]
  - Constipation [Unknown]
  - Diarrhoea [Unknown]
  - Drug hypersensitivity [Unknown]
  - Urinary tract infection [Unknown]
  - Hypertension [Unknown]
  - Coronary artery disease [Unknown]
